FAERS Safety Report 9808031 (Version 3)
Quarter: 2014Q1

REPORT INFORMATION
  Report Type: Spontaneous
  Country: AT (occurrence: AT)
  Receive Date: 20140110
  Receipt Date: 20140312
  Transmission Date: 20141002
  Serious: Yes (Other)
  Sender: FDA-Public Use
  Company Number: AT-B.I. PHARMACEUTICALS,INC./RIDGEFIELD-2014-BI-00895BE

PATIENT
  Sex: Male
  Weight: 98 kg

DRUGS (5)
  1. PRADAXA [Suspect]
     Indication: KNEE ARTHROPLASTY
     Dosage: 220 MG
     Route: 048
     Dates: start: 20130319, end: 20130425
  2. SIMVASTATIN [Concomitant]
     Indication: METABOLIC SYNDROME
     Dosage: 40 MG
     Route: 048
     Dates: start: 2012, end: 2014
  3. BEZAFIBRAT [Concomitant]
     Indication: METABOLIC SYNDROME
     Dosage: 400 MG
     Route: 048
     Dates: start: 2012, end: 2014
  4. ENALAPRIL [Concomitant]
     Indication: METABOLIC SYNDROME
     Dosage: 20 MG
     Route: 048
     Dates: start: 2012, end: 2014
  5. PANTOLOC [Concomitant]
     Indication: METABOLIC SYNDROME
     Dosage: 40 MG
     Route: 048
     Dates: start: 2012, end: 2014

REACTIONS (4)
  - Venous occlusion [Recovered/Resolved]
  - Arterial occlusive disease [Unknown]
  - Dysaesthesia [Unknown]
  - Carpal tunnel syndrome [Unknown]
